FAERS Safety Report 21643365 (Version 1)
Quarter: 2022Q4

REPORT INFORMATION
  Report Type: Spontaneous
  Country: CA (occurrence: CA)
  Receive Date: 20221125
  Receipt Date: 20221125
  Transmission Date: 20230112
  Serious: Yes (Death, Other)
  Sender: FDA-Public Use
  Company Number: CA-TEVA-2022-CA-2827577

PATIENT
  Age: 23 Year
  Sex: Female

DRUGS (18)
  1. ARIPIPRAZOLE [Suspect]
     Active Substance: ARIPIPRAZOLE
     Indication: Schizophrenia
     Route: 065
  2. ARIPIPRAZOLE [Suspect]
     Active Substance: ARIPIPRAZOLE
     Indication: Product used for unknown indication
     Route: 065
  3. QUETIAPINE FUMARATE [Suspect]
     Active Substance: QUETIAPINE FUMARATE
     Indication: Schizophrenia
     Route: 048
  4. OLANZAPINE [Suspect]
     Active Substance: OLANZAPINE
     Indication: Schizophrenia
     Route: 065
  5. RISPERIDONE [Suspect]
     Active Substance: RISPERIDONE
     Indication: Schizophrenia
     Route: 065
  6. CLOZAPINE [Suspect]
     Active Substance: CLOZAPINE
     Indication: Schizophrenia
     Route: 065
  7. FLUPENTIXOL DECANOATE [Suspect]
     Active Substance: FLUPENTIXOL DECANOATE
     Indication: Schizophrenia
     Route: 065
  8. LATUDA [Suspect]
     Active Substance: LURASIDONE HYDROCHLORIDE
     Indication: Schizophrenia
     Route: 048
  9. PALIPERIDONE [Suspect]
     Active Substance: PALIPERIDONE
     Indication: Schizophrenia
     Route: 065
  10. PALIPERIDONE [Suspect]
     Active Substance: PALIPERIDONE
     Route: 065
  11. SAPHRIS [Suspect]
     Active Substance: ASENAPINE MALEATE
     Indication: Schizophrenia
     Route: 065
  12. ZIPRASIDONE MESYLATE [Suspect]
     Active Substance: ZIPRASIDONE MESYLATE
     Indication: Schizophrenia
     Route: 065
  13. ZUCLOPENTHIXOL [Suspect]
     Active Substance: ZUCLOPENTHIXOL
     Indication: Schizophrenia
     Route: 065
  14. ZUCLOPENTHIXOL ACETATE [Suspect]
     Active Substance: ZUCLOPENTHIXOL ACETATE
     Indication: Schizophrenia
     Route: 065
  15. ZUCLOPENTHIXOL DECANOATE [Suspect]
     Active Substance: ZUCLOPENTHIXOL DECANOATE
     Indication: Schizophrenia
     Route: 065
  16. ZYPREXA [Suspect]
     Active Substance: OLANZAPINE
     Indication: Schizophrenia
     Route: 065
  17. ABILIFY [Suspect]
     Active Substance: ARIPIPRAZOLE
     Indication: Schizophrenia
     Route: 065
  18. RISPERDAL [Concomitant]
     Active Substance: RISPERIDONE
     Indication: Product used for unknown indication
     Route: 065

REACTIONS (15)
  - Anosognosia [Fatal]
  - Completed suicide [Fatal]
  - Condition aggravated [Fatal]
  - Disturbance in social behaviour [Fatal]
  - Dyskinesia [Fatal]
  - Dystonia [Fatal]
  - Metabolic disorder [Fatal]
  - Personality change [Fatal]
  - Schizophrenia [Fatal]
  - Sedation [Fatal]
  - Sexual dysfunction [Fatal]
  - Suicide attempt [Fatal]
  - Blood glucose increased [Fatal]
  - Blood prolactin abnormal [Fatal]
  - Drug ineffective [Fatal]
